FAERS Safety Report 5703530-5 (Version None)
Quarter: 2008Q2

REPORT INFORMATION
  Report Type: 
  Country: None (occurrence: None)
  Receive Date: 20080411
  Receipt Date: 20080404
  Transmission Date: 20081010
  Serious: Yes (Hospitalization)
  Sender: FDA-Public Use
  Company Number: SG-GENENTECH-258407

PATIENT
  Sex: Female
  Weight: 55 kg

DRUGS (4)
  1. BEVACIZUMAB [Suspect]
     Indication: NON-SMALL CELL LUNG CANCER
     Dosage: 825 MG, Q3W
     Route: 042
     Dates: start: 20080320
  2. CISPLATIN [Suspect]
     Indication: NON-SMALL CELL LUNG CANCER
     Dosage: 126 MG, Q3W
     Route: 042
     Dates: start: 20080320
  3. GEMCITABINE [Suspect]
     Indication: NON-SMALL CELL LUNG CANCER
     Dosage: 1580 MG, DAY1+8/Q3W
     Route: 042
     Dates: start: 20080320
  4. ANALGESICS [Concomitant]
     Indication: PAIN

REACTIONS (1)
  - BACK PAIN [None]
